FAERS Safety Report 8053906-9 (Version None)
Quarter: 2012Q1

REPORT INFORMATION
  Report Type: 
  Country: None (occurrence: None)
  Receive Date: 20120118
  Receipt Date: 20120113
  Transmission Date: 20120608
  Serious: Yes (Death, Other)
  Sender: FDA-Public Use
  Company Number: US-ELI_LILLY_AND_COMPANY-US201201004359

PATIENT
  Sex: Female

DRUGS (14)
  1. COZAAR [Concomitant]
  2. METFORMIN HCL [Concomitant]
  3. ADCIRCA [Suspect]
     Dosage: 40 MG, QD
  4. ALBUTEROL [Concomitant]
  5. NIFEDICAL [Concomitant]
  6. COUMADIN [Concomitant]
  7. LASIX [Concomitant]
  8. PROTONIX [Concomitant]
  9. POTASSIUM CHLORIDE [Concomitant]
  10. ATROVENT [Concomitant]
  11. CALCIUM [Concomitant]
  12. MYCOPHENOLATE MOFETIL (CELLCEPT) [Concomitant]
  13. NORCO [Concomitant]
  14. CLARITIN [Concomitant]

REACTIONS (2)
  - DEATH [None]
  - SURGERY [None]
